FAERS Safety Report 26088302 (Version 1)
Quarter: 2025Q4

REPORT INFORMATION
  Report Type: Other
  Country: RU (occurrence: RU)
  Receive Date: 20251125
  Receipt Date: 20251125
  Transmission Date: 20260117
  Serious: Yes (Life-Threatening)
  Sender: INCYTE
  Company Number: RU-002147023-NVSC2025RU180364

PATIENT
  Age: 72 Year
  Weight: 66 kg

DRUGS (1)
  1. RUXOLITINIB [Suspect]
     Active Substance: RUXOLITINIB
     Indication: Myelofibrosis
     Dosage: 15 MG, BID

REACTIONS (3)
  - Dyspnoea [Recovering/Resolving]
  - Asthenia [Recovering/Resolving]
  - Cardiac disorder [Recovering/Resolving]
